FAERS Safety Report 10075946 (Version 1)
Quarter: 2014Q2

REPORT INFORMATION
  Report Type: Spontaneous
  Country: KR (occurrence: KR)
  Receive Date: 20140414
  Receipt Date: 20140414
  Transmission Date: 20141212
  Serious: Yes (Death, Hospitalization, Other)
  Sender: FDA-Public Use
  Company Number: PHHY2014KR043207

PATIENT
  Age: 78 Year
  Sex: Female

DRUGS (2)
  1. GLIVEC [Suspect]
     Indication: GASTROINTESTINAL STROMAL TUMOUR
     Dosage: 400 MG, PER DAY
     Route: 048
  2. SUTENT [Suspect]
     Indication: GASTROINTESTINAL STROMAL TUMOUR
     Dosage: 50 MG, PER DAY
     Route: 048

REACTIONS (12)
  - Death [Fatal]
  - Malignant pleural effusion [Recovering/Resolving]
  - Peritonitis [Unknown]
  - Intestinal perforation [Unknown]
  - Dyspnoea [Recovering/Resolving]
  - Ascites [Recovering/Resolving]
  - Toxicity to various agents [Recovering/Resolving]
  - Neutropenia [Not Recovered/Not Resolved]
  - Metastases to peritoneum [Recovering/Resolving]
  - Malignant neoplasm progression [Unknown]
  - Gastrointestinal stromal tumour [Unknown]
  - Anaemia [Recovering/Resolving]
